FAERS Safety Report 4305912-5 (Version None)
Quarter: 2004Q1

REPORT INFORMATION
  Report Type: 
  Country: None (occurrence: None)
  Receive Date: 20040226
  Receipt Date: 20040218
  Transmission Date: 20041129
  Serious: Yes (Hospitalization, Other)
  Sender: FDA-Public Use
  Company Number: WAES 0402USA01517

PATIENT
  Age: 16 Day
  Sex: Female

DRUGS (3)
  1. INDOCIN I.V. [Suspect]
     Indication: PATENT DUCTUS ARTERIOSUS
     Route: 041
     Dates: start: 20040120, end: 20040122
  2. INDOCIN I.V. [Suspect]
     Route: 041
     Dates: start: 20040127, end: 20040129
  3. INDOCIN I.V. [Suspect]
     Route: 041
     Dates: start: 20040202, end: 20040203

REACTIONS (2)
  - GASTROINTESTINAL HAEMORRHAGE [None]
  - HAEMOLYTIC ANAEMIA [None]
